FAERS Safety Report 11859488 (Version 2)
Quarter: 2016Q1

REPORT INFORMATION
  Report Type: Spontaneous
  Country: US (occurrence: US)
  Receive Date: 20151221
  Receipt Date: 20160303
  Transmission Date: 20160526
  Serious: No
  Sender: FDA-Public Use
  Company Number: US-PFIZER INC-2015423676

PATIENT
  Age: 71 Year
  Sex: Female
  Weight: 76 kg

DRUGS (5)
  1. ELIQUIS [Concomitant]
     Active Substance: APIXABAN
     Indication: COAGULOPATHY
     Dosage: 5 MG, 2X/DAY
     Route: 048
     Dates: start: 201507
  2. CARVEDILOL. [Concomitant]
     Active Substance: CARVEDILOL
     Indication: CARDIAC DISORDER
     Dosage: 12.5 MG, 2X/DAY
     Route: 048
  3. DIOVAN [Concomitant]
     Active Substance: VALSARTAN
     Indication: CARDIAC DISORDER
     Dosage: 160 MG, 1X/DAY
     Route: 048
  4. TETRACYCLINE HCL [Suspect]
     Active Substance: TETRACYCLINE HYDROCHLORIDE
     Indication: URINARY TRACT INFECTION
     Dosage: UNK
  5. TIKOSYN [Concomitant]
     Active Substance: DOFETILIDE
     Indication: CARDIAC FLUTTER
     Dosage: 125 UG, 2X/DAY
     Route: 048
     Dates: start: 20150812

REACTIONS (4)
  - Tinnitus [Not Recovered/Not Resolved]
  - Hypoacusis [Not Recovered/Not Resolved]
  - Pruritus [Recovered/Resolved]
  - Rash [Recovered/Resolved]
